FAERS Safety Report 5146224-X (Version None)
Quarter: 2006Q4

REPORT INFORMATION
  Report Type: 
  Country: None (occurrence: None)
  Receive Date: 20061106
  Receipt Date: 20061106
  Transmission Date: 20070319
  Serious: No
  Sender: FDA-Public Use
  Company Number: None

PATIENT
  Sex: Female

DRUGS (1)
  1. ORACEA [Suspect]
     Dosage: PO
     Route: 048
     Dates: start: 20060930, end: 20061102

REACTIONS (3)
  - BOWEL SOUNDS ABNORMAL [None]
  - FEAR [None]
  - GASTRIC DISORDER [None]
